FAERS Safety Report 6304456-9 (Version None)
Quarter: 2009Q3

REPORT INFORMATION
  Report Type: 
  Country: None (occurrence: None)
  Receive Date: 20090811
  Receipt Date: 20090421
  Transmission Date: 20100115
  Serious: Yes (Hospitalization)
  Sender: FDA-Public Use
  Company Number: PHHO2009US02728

PATIENT
  Sex: Female
  Weight: 75.5 kg

DRUGS (5)
  1. RAD 666 RAD+TAB [Suspect]
     Indication: RENAL CELL CARCINOMA
     Dosage: 10 MG/DAY
     Route: 048
     Dates: start: 20090217
  2. BEVACIZUMAB [Concomitant]
     Indication: RENAL CELL CARCINOMA
  3. METOPROLOL [Concomitant]
     Indication: HYPERTENSION
     Dosage: 50 MG, BID
     Dates: start: 20080101
  4. MOTRIN [Concomitant]
     Indication: PAIN
     Dosage: 200 MG, PRN
     Dates: start: 20080101
  5. HYDROCHLOROTHIAZIDE [Concomitant]
     Indication: HYPERTENSION
     Dosage: 25 MG, QD
     Dates: start: 20050101

REACTIONS (5)
  - ANXIETY [None]
  - BACK PAIN [None]
  - DYSPNOEA [None]
  - NAUSEA [None]
  - VOMITING [None]
